FAERS Safety Report 4452779-0 (Version None)
Quarter: 2004Q3

REPORT INFORMATION
  Report Type: 
  Country: None (occurrence: None)
  Receive Date: 20040916
  Receipt Date: 20040907
  Transmission Date: 20050211
  Serious: Yes (Other)
  Sender: FDA-Public Use
  Company Number: 2004EU001693

PATIENT
  Age: 54 Year
  Sex: Male

DRUGS (4)
  1. PROGRAF [Suspect]
     Indication: LIVER TRANSPLANT
     Dosage: 8.00 MG, UID/QD
  2. AZATHIOPRINE [Concomitant]
  3. PREDNISOLONE [Concomitant]
  4. GANCICLOVIR SODIUM [Concomitant]

REACTIONS (8)
  - ANTI-PLATELET ANTIBODY [None]
  - AUTOIMMUNE DISORDER [None]
  - CRYOGLOBULINAEMIA [None]
  - GRAFT VERSUS HOST DISEASE [None]
  - HAEMOLYTIC ANAEMIA [None]
  - HYPERGAMMAGLOBULINAEMIA [None]
  - LYMPHADENOPATHY [None]
  - PANCYTOPENIA [None]
